FAERS Safety Report 4751366-4 (Version None)
Quarter: 2005Q3

REPORT INFORMATION
  Report Type: 
  Country: None (occurrence: None)
  Receive Date: 20050822
  Receipt Date: 20050811
  Transmission Date: 20060218
  Serious: Yes (Other)
  Sender: FDA-Public Use
  Company Number: HQWYE903015AUG05

PATIENT
  Sex: Female

DRUGS (4)
  1. EFFEXOR XR [Suspect]
     Indication: ANXIETY
     Dosage: 37.5 MG 1X PER 1 DAY ORAL
     Route: 048
     Dates: start: 20050101, end: 20050101
  2. EFFEXOR XR [Suspect]
     Indication: DEPRESSION
     Dosage: 37.5 MG 1X PER 1 DAY ORAL
     Route: 048
     Dates: start: 20050101, end: 20050101
  3. RISPERDAL [Suspect]
     Indication: ANXIETY
     Dates: start: 20050101, end: 20050101
  4. RISPERDAL [Suspect]
     Indication: DEPRESSION
     Dates: start: 20050101, end: 20050101

REACTIONS (5)
  - ASTHENIA [None]
  - CONVERSION DISORDER [None]
  - CONVULSION [None]
  - FATIGUE [None]
  - STARING [None]
